FAERS Safety Report 9377047 (Version 3)
Quarter: 2014Q2

REPORT INFORMATION
  Report Type: Report from Study
  Country: ES (occurrence: ES)
  Receive Date: 20130701
  Receipt Date: 20140523
  Transmission Date: 20141212
  Serious: Yes (Disabling)
  Sender: FDA-Public Use
  Company Number: ES-INCYTE CORPORATION-2013IN001332

PATIENT
  Age: 53 Year
  Sex: Female
  Weight: 83 kg

DRUGS (7)
  1. INC424 [Suspect]
     Indication: MYELOFIBROSIS
     Dosage: 40 MG, BID
     Route: 048
     Dates: start: 20120810, end: 20121007
  2. INC424 [Suspect]
     Dosage: 10 MG, BID
     Route: 048
     Dates: start: 20121008, end: 20130616
  3. INC424 [Suspect]
     Dosage: 10 MG, BID
     Route: 048
     Dates: start: 20130712
  4. PROPANOLOL [Concomitant]
     Indication: TACHYCARDIA
     Dosage: UNK
     Dates: start: 20121108
  5. AAS [Concomitant]
     Indication: HEADACHE
     Dosage: 100 MG, QD
     Dates: start: 20070228
  6. EUTIROX [Concomitant]
     Indication: THYROID DISORDER
     Dosage: 50 MG, QD
     Dates: start: 20080324
  7. FERROSANOL [Concomitant]
     Indication: IRON DEFICIENCY ANAEMIA
     Dosage: 100 MG, QD
     Dates: start: 20121214

REACTIONS (2)
  - Depression [Recovered/Resolved]
  - Headache [Recovered/Resolved]
